FAERS Safety Report 17742009 (Version 1)
Quarter: 2020Q2

REPORT INFORMATION
  Report Type: Spontaneous
  Country: CN (occurrence: CN)
  Receive Date: 20200504
  Receipt Date: 20200504
  Transmission Date: 20200714
  Serious: Yes (Hospitalization)
  Sender: FDA-Public Use
  Company Number: NVSC2020CN119411

PATIENT
  Age: 59 Year
  Sex: Female

DRUGS (8)
  1. METFORMIN [Interacting]
     Active Substance: METFORMIN HYDROCHLORIDE
     Indication: HYPERTENSION
  2. METFORMIN [Suspect]
     Active Substance: METFORMIN HYDROCHLORIDE
     Indication: TYPE 2 DIABETES MELLITUS
     Dosage: UNK
     Route: 065
  3. OMEPRAZOLE. [Concomitant]
     Active Substance: OMEPRAZOLE
     Indication: HELICOBACTER INFECTION
     Dosage: 20 MG, BID
     Route: 065
  4. ACARBOSE. [Interacting]
     Active Substance: ACARBOSE
     Indication: TYPE 2 DIABETES MELLITUS
     Route: 065
  5. BISMUTH PECTIN [Concomitant]
     Active Substance: BISMUTH
     Indication: HELICOBACTER INFECTION
     Dosage: 200 MG, BID
     Route: 065
  6. ACARBOSE. [Interacting]
     Active Substance: ACARBOSE
     Indication: HYPERTENSION
  7. CLARITHROMYCIN. [Interacting]
     Active Substance: CLARITHROMYCIN
     Indication: HELICOBACTER INFECTION
     Dosage: 500 MG, BID
     Route: 065
  8. AMOXICILLIN. [Concomitant]
     Active Substance: AMOXICILLIN
     Indication: HELICOBACTER INFECTION
     Dosage: 1000 MG, BID
     Route: 065

REACTIONS (3)
  - Drug interaction [Unknown]
  - Hypoglycaemia [Unknown]
  - Cold sweat [Unknown]
